FAERS Safety Report 17555074 (Version 1)
Quarter: 2020Q1

REPORT INFORMATION
  Report Type: Spontaneous
  Country: FR (occurrence: FR)
  Receive Date: 20200318
  Receipt Date: 20200318
  Transmission Date: 20200409
  Serious: Yes (Hospitalization)
  Sender: FDA-Public Use
  Company Number: FR-TEVA-2020-FR-1208580

PATIENT
  Age: 14 Year
  Sex: Female
  Weight: 64 kg

DRUGS (3)
  1. ERCEFURYL [Suspect]
     Active Substance: NIFUROXAZIDE
     Indication: SUICIDE ATTEMPT
     Route: 048
     Dates: start: 20200120, end: 20200120
  2. DOLIPRANE [Suspect]
     Active Substance: ACETAMINOPHEN
     Indication: SUICIDE ATTEMPT
     Route: 048
     Dates: start: 20200120, end: 20200120
  3. ANTADYS 100 MG [Suspect]
     Active Substance: FLURBIPROFEN
     Indication: SUICIDE ATTEMPT
     Route: 048
     Dates: start: 20200120, end: 20200120

REACTIONS (3)
  - Toxicity to various agents [Recovered/Resolved]
  - Intentional overdose [Unknown]
  - Acute kidney injury [Recovering/Resolving]

NARRATIVE: CASE EVENT DATE: 20200120
